FAERS Safety Report 8818170 (Version 1)
Quarter: 2012Q4

REPORT INFORMATION
  Report Type: 
  Country: US (occurrence: US)
  Receive Date: 20121001
  Receipt Date: 20121001
  Transmission Date: 20130627
  Serious: No
  Sender: FDA-Public Use
  Company Number: US-ASTRAZENECA-2012SE72191

PATIENT
  Age: 75 Year
  Sex: Female
  Weight: 70.3 kg

DRUGS (4)
  1. NEXIUM [Suspect]
     Indication: GASTROOESOPHAGEAL REFLUX DISEASE
     Route: 048
  2. OMEPRAZOLE [Suspect]
     Indication: GASTROOESOPHAGEAL REFLUX DISEASE
     Route: 048
     Dates: start: 2012
  3. CRESTOR [Suspect]
     Indication: BLOOD CHOLESTEROL ABNORMAL
     Dosage: THREE TIMES A WEEK
     Route: 048
  4. LISINOPRIL [Concomitant]
     Indication: HYPERTENSION

REACTIONS (6)
  - Blood cholesterol abnormal [Unknown]
  - Hyperchlorhydria [Unknown]
  - Dysphonia [Not Recovered/Not Resolved]
  - Intentional drug misuse [Unknown]
  - Drug effect incomplete [Unknown]
  - Off label use [Unknown]
